FAERS Safety Report 16013583 (Version 1)
Quarter: 2019Q1

REPORT INFORMATION
  Report Type: Spontaneous
  Country: US (occurrence: US)
  Receive Date: 20190227
  Receipt Date: 20190227
  Transmission Date: 20190418
  Serious: Yes (Hospitalization)
  Sender: FDA-Public Use
  Company Number: None

PATIENT
  Age: 83 Year
  Sex: Male
  Weight: 82.35 kg

DRUGS (22)
  1. FLOMAX [Concomitant]
     Active Substance: TAMSULOSIN HYDROCHLORIDE
  2. LOSARTAN. [Concomitant]
     Active Substance: LOSARTAN
  3. VITAMIN D3 [Concomitant]
     Active Substance: CHOLECALCIFEROL
  4. PENTOXIFYLLINE ER [Concomitant]
     Active Substance: PENTOXIFYLLINE
  5. NIFEDIPINE. [Concomitant]
     Active Substance: NIFEDIPINE
  6. PROBIOTIC [Concomitant]
     Active Substance: PROBIOTICS NOS
  7. LEUKERAN [Suspect]
     Active Substance: CHLORAMBUCIL
     Indication: LYMPHOCYTIC LEUKAEMIA
     Dosage: ?          OTHER FREQUENCY:EVERY 2 WEEKS;?
     Route: 048
     Dates: start: 20180706, end: 20190227
  8. PARICALCITOL. [Concomitant]
     Active Substance: PARICALCITOL
  9. VASCEPA [Concomitant]
     Active Substance: ICOSAPENT ETHYL
  10. ZOCOR [Concomitant]
     Active Substance: SIMVASTATIN
  11. CENTRUM [Concomitant]
     Active Substance: VITAMINS
  12. GINGER TEA [Concomitant]
  13. WARFARIN [Concomitant]
     Active Substance: WARFARIN
  14. LACTULOSE. [Concomitant]
     Active Substance: LACTULOSE
  15. ERYTHROMYCIN. [Concomitant]
     Active Substance: ERYTHROMYCIN
  16. PROCHLORPERAZINE. [Concomitant]
     Active Substance: PROCHLORPERAZINE
  17. VITAMIN B COMPLEX [Concomitant]
     Active Substance: CYANOCOBALAMIN\DEXPANTHENOL\NIACINAMIDE\PYRIDOXINE HYDROCHLORIDE\RIBOFLAVIN 5^-PHOSPHATE SODIUM\THIAMINE HYDROCHLORIDE\VITAMIN B COMPLEX
  18. NEXIUM [Concomitant]
     Active Substance: ESOMEPRAZOLE MAGNESIUM
  19. ALLOPURINOL. [Concomitant]
     Active Substance: ALLOPURINOL
  20. TRIAMCINOLONE ACETONIDE. [Concomitant]
     Active Substance: TRIAMCINOLONE ACETONIDE
  21. LATANOPROST. [Concomitant]
     Active Substance: LATANOPROST
  22. METOPROLOL. [Concomitant]
     Active Substance: METOPROLOL

REACTIONS (1)
  - Pneumonia [None]

NARRATIVE: CASE EVENT DATE: 20190227
